FAERS Safety Report 9530875 (Version 3)
Quarter: 2014Q2

REPORT INFORMATION
  Report Type: Report from Study
  Country: US (occurrence: US)
  Receive Date: 20130918
  Receipt Date: 20140416
  Transmission Date: 20141212
  Serious: Yes (Other)
  Sender: FDA-Public Use
  Company Number: US-BAYER-2013-111986

PATIENT
  Age: 38 Year
  Sex: Female

DRUGS (8)
  1. BETASERON [Suspect]
     Indication: RELAPSING-REMITTING MULTIPLE SCLEROSIS
     Dosage: 8 MIU, QOD
     Route: 058
     Dates: start: 20100121
  2. BETASERON [Suspect]
     Indication: RELAPSING-REMITTING MULTIPLE SCLEROSIS
     Dosage: 8 MIU, ONCE
     Route: 058
     Dates: start: 201308, end: 201308
  3. BETASERON [Suspect]
     Indication: RELAPSING-REMITTING MULTIPLE SCLEROSIS
     Dosage: 8 MIU, QOD
     Route: 058
  4. GABAPENTIN [Concomitant]
     Dosage: 800 MG, TID
  5. GABAPENTIN [Concomitant]
     Dosage: 600 MG, BID
     Dates: start: 20131012
  6. ZANAFLEX [Concomitant]
     Dosage: 2 MG, TID
  7. MECLIZINE [Concomitant]
     Dosage: 25 MG, BID
  8. BACLOFEN [Concomitant]
     Dosage: 10 MG, QID

REACTIONS (7)
  - Hyperhidrosis [Not Recovered/Not Resolved]
  - Expired product administered [Recovered/Resolved]
  - Muscle spasms [Recovered/Resolved]
  - Musculoskeletal stiffness [Recovered/Resolved]
  - Opisthotonus [Recovered/Resolved]
  - Fall [None]
  - Hypoaesthesia [None]
